FAERS Safety Report 10243933 (Version 1)
Quarter: 2014Q2

REPORT INFORMATION
  Report Type: Spontaneous
  Country: IT (occurrence: IT)
  Receive Date: 20140618
  Receipt Date: 20140618
  Transmission Date: 20141212
  Serious: Yes (Death)
  Sender: FDA-Public Use
  Company Number: CHPA2014IT008047

PATIENT
  Age: 63 Year
  Sex: Female

DRUGS (1)
  1. ACETAMINOPHEN (PARACETAMOL) [Suspect]
     Dosage: UNK

REACTIONS (8)
  - Epidermolysis bullosa [Fatal]
  - Rhabdomyolysis [Fatal]
  - Disseminated intravascular coagulation [Fatal]
  - Myocardial ischaemia [Fatal]
  - Septic shock [Fatal]
  - Presyncope [Unknown]
  - Confusional state [Unknown]
  - Asthenia [Unknown]
